FAERS Safety Report 4343946-5 (Version None)
Quarter: 2004Q2

REPORT INFORMATION
  Report Type: 
  Country: None (occurrence: None)
  Receive Date: 20040419
  Receipt Date: 20040407
  Transmission Date: 20050107
  Serious: Yes (Hospitalization)
  Sender: FDA-Public Use
  Company Number: A02200401251

PATIENT
  Age: 81 Year
  Sex: Female

DRUGS (1)
  1. STILNOX- (ZOLPIDEM) - TABLET- 10 MG [Suspect]
     Dosage: 30 MG ONCE   ORAL
     Route: 048
     Dates: start: 20040309, end: 20040309

REACTIONS (7)
  - CONDITION AGGRAVATED [None]
  - DEPRESSION [None]
  - FALL [None]
  - GAIT DISTURBANCE [None]
  - IMPAIRED SELF-CARE [None]
  - OVERDOSE [None]
  - PROSTRATION [None]
